FAERS Safety Report 22654874 (Version 1)
Quarter: 2023Q2

REPORT INFORMATION
  Report Type: Spontaneous
  Country: AR (occurrence: AR)
  Receive Date: 20230629
  Receipt Date: 20230629
  Transmission Date: 20230721
  Serious: Yes (Death)
  Sender: FDA-Public Use
  Company Number: AR-ALNYLAM PHARMACEUTICALS, INC.-ALN-2023-003064

PATIENT

DRUGS (3)
  1. ONPATTRO [Suspect]
     Active Substance: PATISIRAN SODIUM
     Indication: Hereditary neuropathic amyloidosis
     Dosage: 0.3 MILLIGRAM/KILOGRAM, EVERY 3 WEEKS (Q3W)
     Route: 065
     Dates: start: 20211210, end: 20230605
  2. GABAPENTIN [Concomitant]
     Active Substance: GABAPENTIN
     Indication: Product used for unknown indication
     Dosage: 100 (UNIT NOT REPORTED)
     Route: 065
  3. AMITRIPTYLINE [Concomitant]
     Active Substance: AMITRIPTYLINE
     Indication: Product used for unknown indication
     Dosage: 25 (UNIT NOT REPORTED)
     Route: 065

REACTIONS (3)
  - Sepsis [Fatal]
  - Multiple organ dysfunction syndrome [Fatal]
  - Haematological infection [Fatal]
